FAERS Safety Report 8680634 (Version 2)
Quarter: 2012Q4

REPORT INFORMATION
  Report Type: 
  Country: US (occurrence: US)
  Receive Date: 20120724
  Receipt Date: 20121213
  Transmission Date: 20130627
  Serious: Yes (Other)
  Sender: FDA-Public Use
  Company Number: US-ROXANE LABORATORIES, INC.-2012-RO-01548RO

PATIENT
  Age: 86 Year
  Sex: Female

DRUGS (4)
  1. LITHIUM CARBONATE [Suspect]
  2. DONEPEZIL HYDROCHLORIDE [Suspect]
  3. RISPERIDONE [Suspect]
  4. PRIMIDONE [Suspect]

REACTIONS (3)
  - Toxicity to various agents [Recovered/Resolved]
  - Dysphemia [Recovered/Resolved]
  - Grip strength decreased [Unknown]
